FAERS Safety Report 6711920-7 (Version None)
Quarter: 2010Q2

REPORT INFORMATION
  Report Type: 
  Country: None (occurrence: None)
  Receive Date: 20100505
  Receipt Date: 20100428
  Transmission Date: 20101027
  Serious: Yes (Other)
  Sender: FDA-Public Use
  Company Number: GB-WYE-G06061510

PATIENT
  Sex: Male

DRUGS (1)
  1. REFACTO [Suspect]
     Dosage: 6 DOSE EVERY 1 TOT

REACTIONS (1)
  - FACTOR VIII INHIBITION [None]
